FAERS Safety Report 20141131 (Version 1)
Quarter: 2021Q4

REPORT INFORMATION
  Report Type: Report from Study
  Country: US (occurrence: US)
  Receive Date: 20211202
  Receipt Date: 20211202
  Transmission Date: 20220303
  Serious: Yes (Hospitalization)
  Sender: FDA-Public Use
  Company Number: US-MYLANLABS-2021M1089919

PATIENT
  Age: 6 Decade
  Sex: Female

DRUGS (3)
  1. PANTOPRAZOLE [Suspect]
     Active Substance: PANTOPRAZOLE
     Indication: Product used for unknown indication
     Dosage: UNK
     Route: 065
  2. NIVOLUMAB [Suspect]
     Active Substance: NIVOLUMAB
     Indication: Uveal melanoma
     Dosage: UNK, RECEIVED TWO COURSES, INFUSION
  3. IPILIMUMAB [Suspect]
     Active Substance: IPILIMUMAB
     Indication: Uveal melanoma
     Dosage: UNK, RECEIVED TWO COURSES, INFUSION

REACTIONS (2)
  - Henoch-Schonlein purpura [Recovering/Resolving]
  - Renal vasculitis [Recovering/Resolving]
